FAERS Safety Report 10173405 (Version 2)
Quarter: 2014Q2

REPORT INFORMATION
  Report Type: Report from Study
  Country: RU (occurrence: RU)
  Receive Date: 20140515
  Receipt Date: 20140521
  Transmission Date: 20141212
  Serious: Yes (Death, Life-Threatening, Hospitalization)
  Sender: FDA-Public Use
  Company Number: RU-TEVA-481367USA

PATIENT
  Age: 76 Year
  Sex: Female
  Weight: 58 kg

DRUGS (5)
  1. BENDAMUSTINE [Suspect]
     Indication: MANTLE CELL LYMPHOMA
     Route: 042
     Dates: start: 20140120
  2. BENDAMUSTINE [Suspect]
     Dosage: MOST RECENT DOSE PRIOR TO THE EVENT
     Route: 042
     Dates: start: 20140417
  3. RITUXIMAB [Suspect]
     Indication: MANTLE CELL LYMPHOMA
     Route: 042
     Dates: start: 20140120
  4. RITUXIMAB [Suspect]
     Dosage: MOST RECENT DOSE RECEIVED BEFORE EVENT
     Route: 042
     Dates: start: 20140416
  5. IBRUTINIB/PLACEBO [Suspect]
     Indication: MANTLE CELL LYMPHOMA
     Dosage: 560 MILLIGRAM DAILY;
     Route: 048
     Dates: start: 20140120, end: 20140421

REACTIONS (1)
  - Pseudomembranous colitis [Fatal]
